FAERS Safety Report 4392549-5 (Version None)
Quarter: 2004Q3

REPORT INFORMATION
  Report Type: 
  Country: None (occurrence: None)
  Receive Date: 20040708
  Receipt Date: 20031229
  Transmission Date: 20050211
  Serious: Yes (Life-Threatening, Hospitalization)
  Sender: FDA-Public Use
  Company Number: 200311628JP

PATIENT
  Age: 61 Year
  Sex: Male
  Weight: 55 kg

DRUGS (15)
  1. ARAVA [Suspect]
     Indication: RHEUMATOID ARTHRITIS
     Route: 048
     Dates: start: 20031028, end: 20031222
  2. MAGNESIUM OXIDE [Concomitant]
     Indication: ABNORMAL FAECES
     Route: 048
  3. PREDONINE [Concomitant]
     Indication: RHEUMATOID ARTHRITIS
     Route: 048
  4. FAMOTIDINE [Concomitant]
     Indication: GASTRITIS
     Route: 048
  5. MARZULENE S [Concomitant]
     Indication: GASTRITIS
     Route: 048
  6. FAROM [Concomitant]
     Indication: UPPER RESPIRATORY TRACT INFLAMMATION
     Route: 048
     Dates: end: 20031009
  7. LOXONIN [Concomitant]
     Indication: RHEUMATOID ARTHRITIS
     Route: 048
  8. CYTOTEC [Concomitant]
     Indication: ULCER
     Route: 048
  9. NEUTRAL INSULIN [Concomitant]
     Indication: DIABETES MELLITUS
     Route: 042
  10. RIMATIL [Concomitant]
     Indication: RHEUMATOID ARTHRITIS
     Route: 048
     Dates: end: 20031103
  11. CINAL [Concomitant]
     Indication: HAEMORRHAGIC DIATHESIS
     Route: 048
  12. ADONA [Concomitant]
     Indication: HAEMORRHAGIC DIATHESIS
     Route: 048
     Dates: end: 20040108
  13. TRANSAMIN [Concomitant]
     Indication: HAEMORRHAGIC DIATHESIS
     Route: 048
     Dates: end: 20040108
  14. POLARAMINE [Concomitant]
     Indication: DERMATITIS ALLERGIC
     Dates: start: 20031227, end: 20040106
  15. RELIFEN [Concomitant]
     Indication: RHEUMATOID ARTHRITIS
     Route: 048
     Dates: start: 20031227, end: 20040105

REACTIONS (14)
  - ANGIOIMMUNOBLASTIC T-CELL LYMPHOMA [None]
  - BLOOD CREATININE INCREASED [None]
  - BLOOD LACTATE DEHYDROGENASE INCREASED [None]
  - BLOOD POTASSIUM INCREASED [None]
  - BLOOD UREA INCREASED [None]
  - EPISTAXIS [None]
  - HAEMATOCRIT DECREASED [None]
  - HAEMOGLOBIN DECREASED [None]
  - HAEMORRHAGE SUBCUTANEOUS [None]
  - HAEMORRHAGIC DIATHESIS [None]
  - PLATELET COUNT DECREASED [None]
  - PURPURA [None]
  - RASH [None]
  - THROMBOCYTOPENIA [None]
